FAERS Safety Report 6736937-8 (Version None)
Quarter: 2010Q2

REPORT INFORMATION
  Report Type: 
  Country: None (occurrence: None)
  Receive Date: 20100521
  Receipt Date: 20100430
  Transmission Date: 20101027
  Serious: Yes (Death, Hospitalization)
  Sender: FDA-Public Use
  Company Number: DE-GENENTECH-301226

PATIENT
  Age: 38 Year
  Sex: Female

DRUGS (6)
  1. MABTHERA [Suspect]
     Indication: NON-HODGKIN'S LYMPHOMA
     Dosage: 375 MG/M2, UNK
     Route: 065
     Dates: start: 20100308, end: 20100308
  2. DECORTIN [Concomitant]
     Indication: PREMEDICATION
     Dosage: UNK
  3. FORTECORTIN [Concomitant]
     Indication: PREMEDICATION
     Dosage: UNK
  4. CLEMASTINE FUMARATE [Concomitant]
     Indication: PREMEDICATION
     Dosage: UNK
  5. STEROID NOS [Concomitant]
     Indication: PREMEDICATION
  6. BENDAMUSTINE [Concomitant]
     Indication: DRUG USE FOR UNKNOWN INDICATION

REACTIONS (3)
  - ARRHYTHMIA [None]
  - CIRCULATORY COLLAPSE [None]
  - HYPOXIC ENCEPHALOPATHY [None]
